FAERS Safety Report 4862586-2 (Version None)
Quarter: 2005Q4

REPORT INFORMATION
  Report Type: 
  Country: None (occurrence: None)
  Receive Date: 20051221
  Receipt Date: 20051215
  Transmission Date: 20060501
  Serious: Yes (Life-Threatening, Other)
  Sender: FDA-Public Use
  Company Number: PHEH2005US13558

PATIENT
  Age: 28 Year
  Sex: Female

DRUGS (17)
  1. EFFEXOR [Suspect]
  2. MELLARIL [Suspect]
     Dates: start: 20010101, end: 20040101
  3. PROZAC [Suspect]
  4. DESIPRAMINE HCL [Suspect]
  5. NEURONTIN [Suspect]
  6. LEVOXYL [Suspect]
  7. RISPERDAL [Suspect]
  8. DEPAKENE [Suspect]
  9. WELLBUTRIN [Suspect]
  10. LITHIUM CARBONATE [Suspect]
  11. ZYPREXA [Suspect]
  12. THORAZINE [Suspect]
  13. KLONOPIN [Suspect]
  14. CLOMIPRAMINE HCL [Suspect]
  15. ABILIFY [Suspect]
  16. ROCEPHIN [Suspect]
  17. TRILEPTAL [Suspect]
     Indication: BIPOLAR DISORDER
     Dosage: 1000 MG BID AND 500 MG HS
     Route: 048
     Dates: start: 20010101, end: 20040101

REACTIONS (27)
  - CONSTIPATION [None]
  - CYSTITIS [None]
  - DEAFNESS [None]
  - DEPRESSION [None]
  - DIARRHOEA [None]
  - DYSPHONIA [None]
  - GASTROOESOPHAGEAL REFLUX DISEASE [None]
  - HIATUS HERNIA [None]
  - HYPERHIDROSIS [None]
  - HYPOAESTHESIA [None]
  - KIDNEY INFECTION [None]
  - LIVER DISORDER [None]
  - LOSS OF CONSCIOUSNESS [None]
  - NASAL CONGESTION [None]
  - OEDEMA PERIPHERAL [None]
  - OESOPHAGEAL ULCER HAEMORRHAGE [None]
  - OSTEOPOROSIS [None]
  - PARAESTHESIA [None]
  - RHEUMATOID ARTHRITIS [None]
  - SKIN LACERATION [None]
  - SUICIDE ATTEMPT [None]
  - ULCER [None]
  - VISION BLURRED [None]
  - VOMITING [None]
  - WEIGHT DECREASED [None]
  - WEIGHT INCREASED [None]
  - YELLOW SKIN [None]
